FAERS Safety Report 12346314 (Version 1)
Quarter: 2016Q2

REPORT INFORMATION
  Report Type: Spontaneous
  Country: US (occurrence: US)
  Receive Date: 20160509
  Receipt Date: 20160509
  Transmission Date: 20160815
  Serious: Yes (Other)
  Sender: FDA-Public Use
  Company Number: US-BAYER-2016-084118

PATIENT
  Age: 15 Year
  Sex: Female

DRUGS (4)
  1. EFFEXOR [Concomitant]
     Active Substance: VENLAFAXINE HYDROCHLORIDE
     Dosage: UNK
  2. ALEVE [Suspect]
     Active Substance: NAPROXEN SODIUM
     Indication: MIGRAINE
     Dosage: UNK
  3. AMITRIPTYLINE [Concomitant]
     Active Substance: AMITRIPTYLINE
     Dosage: UNK
  4. ALEVE [Suspect]
     Active Substance: NAPROXEN SODIUM
     Indication: MIGRAINE
     Dosage: 15 DF, ONCE
     Dates: start: 20160428, end: 20160428

REACTIONS (6)
  - Intentional overdose [None]
  - Abdominal pain upper [Recovered/Resolved]
  - Intentional self-injury [None]
  - Chest pain [Recovered/Resolved]
  - Heart rate increased [Recovered/Resolved]
  - Blood pressure measurement [Recovered/Resolved]

NARRATIVE: CASE EVENT DATE: 20160428
